FAERS Safety Report 8472778-1 (Version None)
Quarter: 2012Q2

REPORT INFORMATION
  Report Type: 
  Country: None (occurrence: None)
  Receive Date: 20120622
  Receipt Date: 20120622
  Transmission Date: 20120825
  Serious: Yes (Other)
  Sender: FDA-Public Use
  Company Number: None

PATIENT
  Age: 36 Year
  Sex: Female
  Weight: 77.1115 kg

DRUGS (1)
  1. LEVOFLOXACIN [Suspect]
     Indication: BRONCHITIS
     Dosage: 500MG ONCE A DAY PO
     Route: 048
     Dates: start: 20120612, end: 20120620

REACTIONS (3)
  - MOVEMENT DISORDER [None]
  - ARTHRALGIA [None]
  - TENDONITIS [None]
